FAERS Safety Report 25346436 (Version 1)
Quarter: 2025Q2

REPORT INFORMATION
  Report Type: Other
  Country: US (occurrence: US)
  Receive Date: 20250522
  Receipt Date: 20250522
  Transmission Date: 20250716
  Serious: Yes (Other)
  Sender: LEPU PHARMACEUTICAL TECHNOLOGY CO., LTD.
  Company Number: US-Lepu Pharmaceutical Technology Co., Ltd.-2177257

PATIENT
  Age: 62 Year
  Sex: Female

DRUGS (1)
  1. ATORVASTATIN CALCIUM [Suspect]
     Active Substance: ATORVASTATIN CALCIUM
     Indication: Obesity

REACTIONS (2)
  - Cholestatic liver injury [Recovered/Resolved]
  - Product use in unapproved indication [Unknown]
